FAERS Safety Report 7044472-5 (Version None)
Quarter: 2010Q4

REPORT INFORMATION
  Report Type: 
  Country: None (occurrence: None)
  Receive Date: 20101014
  Receipt Date: 20101004
  Transmission Date: 20110411
  Serious: Yes (Hospitalization)
  Sender: FDA-Public Use
  Company Number: US-US-EMD SERONO, INC.-7004704

PATIENT
  Sex: Female

DRUGS (2)
  1. REBIF [Suspect]
     Indication: MULTIPLE SCLEROSIS
     Route: 058
     Dates: start: 20070823, end: 20090712
  2. REBIF [Suspect]
     Route: 058
     Dates: start: 20100312

REACTIONS (6)
  - ARTHRALGIA [None]
  - CHILLS [None]
  - FEELING HOT [None]
  - INJECTION SITE DISCOLOURATION [None]
  - INJECTION SITE WARMTH [None]
  - MULTIPLE SCLEROSIS RELAPSE [None]
